FAERS Safety Report 14018439 (Version 1)
Quarter: 2017Q3

REPORT INFORMATION
  Report Type: Spontaneous
  Country: US (occurrence: US)
  Receive Date: 20170928
  Receipt Date: 20170928
  Transmission Date: 20171128
  Serious: No
  Sender: FDA-Public Use
  Company Number: US-TEVA-736400ACC

PATIENT
  Sex: Female

DRUGS (1)
  1. ACTAVIS GABAPENTIN [Suspect]
     Active Substance: GABAPENTIN

REACTIONS (1)
  - Rash [Unknown]
